FAERS Safety Report 7215685-4 (Version None)
Quarter: 2011Q1

REPORT INFORMATION
  Report Type: 
  Country: None (occurrence: None)
  Receive Date: 20110107
  Receipt Date: 20101230
  Transmission Date: 20110831
  Serious: Yes (Other)
  Sender: FDA-Public Use
  Company Number: US-MYLANLABS-2010S1022698

PATIENT
  Age: 56 Year
  Sex: Male
  Weight: 122.02 kg

DRUGS (2)
  1. CLOZAPINE [Suspect]
  2. CLOZAPINE [Suspect]

REACTIONS (1)
  - HEPATIC NEOPLASM MALIGNANT [None]
